FAERS Safety Report 24145878 (Version 2)
Quarter: 2024Q3

REPORT INFORMATION
  Report Type: Report from Study
  Country: GB (occurrence: GB)
  Receive Date: 20240729
  Receipt Date: 20240904
  Transmission Date: 20241016
  Serious: Yes (Other)
  Sender: ABBVIE
  Company Number: GB-ABBVIE-5855583

PATIENT
  Sex: Male

DRUGS (1)
  1. SKYRIZI [Suspect]
     Active Substance: RISANKIZUMAB-RZAA
     Indication: Psoriasis
     Dosage: FORM STRENGTH: 150 MILLIGRAM
     Route: 058
     Dates: end: 2024

REACTIONS (7)
  - Cerebrovascular accident [Unknown]
  - Musculoskeletal disorder [Unknown]
  - Aphasia [Unknown]
  - Wound [Unknown]
  - Scab [Unknown]
  - Skin ulcer [Unknown]
  - Erythema [Unknown]

NARRATIVE: CASE EVENT DATE: 20240101
